FAERS Safety Report 5646094-7 (Version None)
Quarter: 2008Q1

REPORT INFORMATION
  Report Type: 
  Country: None (occurrence: None)
  Receive Date: 20080227
  Receipt Date: 20080219
  Transmission Date: 20080703
  Serious: Yes (Hospitalization)
  Sender: FDA-Public Use
  Company Number: B0509076A

PATIENT
  Age: 88 Year
  Sex: Female

DRUGS (5)
  1. VALTREX [Suspect]
     Indication: HERPES ZOSTER
     Dosage: 1000 MG / THREE TIMES PER DAY /ORAL
     Route: 048
     Dates: start: 20080213
  2. ETIZOLAM [Concomitant]
  3. LOXOPROFEN [Concomitant]
  4. TEPRENONE [Concomitant]
  5. AMLODIPINE BESYLATE [Concomitant]

REACTIONS (3)
  - ALTERED STATE OF CONSCIOUSNESS [None]
  - DELIRIUM [None]
  - DYSARTHRIA [None]
